FAERS Safety Report 8463008-5 (Version None)
Quarter: 2012Q2

REPORT INFORMATION
  Report Type: 
  Country: None (occurrence: None)
  Receive Date: 20120625
  Receipt Date: 20120615
  Transmission Date: 20120825
  Serious: Yes (Other)
  Sender: FDA-Public Use
  Company Number: FR-GLAXOSMITHKLINE-B0809427A

PATIENT
  Sex: Male

DRUGS (5)
  1. PROSCAR [Concomitant]
     Indication: BENIGN PROSTATIC HYPERPLASIA
     Route: 048
  2. GLUCOSAMINE [Concomitant]
     Indication: OSTEOARTHRITIS
     Route: 048
  3. MIRTAZAPINE [Concomitant]
     Indication: DEPRESSION
     Route: 048
  4. TADENAN [Concomitant]
     Indication: BENIGN PROSTATIC HYPERPLASIA
     Route: 048
     Dates: start: 20111001
  5. AVODART [Suspect]
     Indication: BENIGN PROSTATIC HYPERPLASIA
     Dosage: .5MG PER DAY
     Route: 048
     Dates: end: 20111001

REACTIONS (2)
  - BREAST CANCER MALE [None]
  - GYNAECOMASTIA [None]
